FAERS Safety Report 8426113 (Version 2)
Quarter: 2012Q4

REPORT INFORMATION
  Report Type: 
  Country: DE (occurrence: DE)
  Receive Date: 20120224
  Receipt Date: 20121007
  Transmission Date: 20130627
  Serious: Yes (Death, Other)
  Sender: FDA-Public Use
  Company Number: PHHY2012DE013598

PATIENT

DRUGS (9)
  1. EVEROLIMUS [Suspect]
     Indication: LUNG TRANSPLANT
  2. CICLOSPORIN [Suspect]
  3. ACYCLOVIR [Concomitant]
  4. ITRACONAZOLE [Concomitant]
  5. CO-TRIMOXAZOLE [Concomitant]
  6. PLASMA [Concomitant]
  7. METHYLPREDNISOLONE [Concomitant]
  8. MYCOPHENOLATE MOFETIL [Concomitant]
  9. PREDNISOLONE [Concomitant]
     Dosage: 0.1 mg/kg

REACTIONS (4)
  - Circulatory collapse [Fatal]
  - Haemolytic uraemic syndrome [Unknown]
  - Renal failure acute [Unknown]
  - Blood creatinine increased [Unknown]
